FAERS Safety Report 7247234-9 (Version None)
Quarter: 2011Q1

REPORT INFORMATION
  Report Type: 
  Country: None (occurrence: None)
  Receive Date: 20110127
  Receipt Date: 20110121
  Transmission Date: 20110831
  Serious: Yes (Hospitalization)
  Sender: FDA-Public Use
  Company Number: BE-ABBOTT-10P-013-0668610-00

PATIENT
  Sex: Male
  Weight: 97.5 kg

DRUGS (6)
  1. SPIRIVA [Concomitant]
     Indication: PRODUCT USED FOR UNKNOWN INDICATION
  2. CARDIFAR 80 [Concomitant]
     Indication: PRODUCT USED FOR UNKNOWN INDICATION
  3. KALETRA [Suspect]
     Indication: HIV INFECTION
     Dosage: 200MG/50MG, 4 TABLETS DAILY
     Dates: start: 20090317
  4. SIPRALEXA [Concomitant]
     Indication: PRODUCT USED FOR UNKNOWN INDICATION
  5. PEGASYS [Suspect]
     Indication: HEPATITIS C
     Dates: end: 20100901
  6. ABACAVIR/LAMIVUDINE [Concomitant]
     Indication: PRODUCT USED FOR UNKNOWN INDICATION
     Dosage: 600MG/300MG, 1 TABLET DAILY
     Dates: start: 20090317

REACTIONS (2)
  - DELIRIUM [None]
  - DEPRESSION [None]
